FAERS Safety Report 7339169-8 (Version None)
Quarter: 2011Q1

REPORT INFORMATION
  Report Type: 
  Country: None (occurrence: None)
  Receive Date: 20110308
  Receipt Date: 20110308
  Transmission Date: 20110831
  Serious: Yes (Hospitalization, Other)
  Sender: FDA-Public Use
  Company Number: PHHO2008JP02578

PATIENT
  Sex: Female
  Weight: 45 kg

DRUGS (2)
  1. ROHYPNOL [Concomitant]
  2. FTY [Suspect]
     Indication: MULTIPLE SCLEROSIS
     Dosage: 1.25 MG, QD
     Route: 048
     Dates: start: 20080213, end: 20080501

REACTIONS (23)
  - HEPATIC FUNCTION ABNORMAL [None]
  - PYREXIA [None]
  - APHASIA [None]
  - MALAISE [None]
  - NAUSEA [None]
  - SENSORY LOSS [None]
  - MOTOR DYSFUNCTION [None]
  - RESTLESSNESS [None]
  - MUSCULAR WEAKNESS [None]
  - SENSORY DISTURBANCE [None]
  - MULTIPLE SCLEROSIS RELAPSE [None]
  - PAIN [None]
  - BRADYCARDIA [None]
  - CENTRAL NERVOUS SYSTEM LESION [None]
  - ANXIETY [None]
  - CHEST DISCOMFORT [None]
  - MUSCLE TIGHTNESS [None]
  - DECREASED APPETITE [None]
  - GALLBLADDER POLYP [None]
  - BACK PAIN [None]
  - NERVOUS SYSTEM DISORDER [None]
  - MUSCLE FATIGUE [None]
  - HEART RATE DECREASED [None]
